FAERS Safety Report 13056498 (Version 5)
Quarter: 2021Q4

REPORT INFORMATION
  Report Type: Report from Study
  Country: US (occurrence: US)
  Receive Date: 20161222
  Receipt Date: 20211026
  Transmission Date: 20220303
  Serious: Yes (Hospitalization)
  Sender: FDA-Public Use
  Company Number: US-ROCHE-1838808

PATIENT
  Age: 56 Year
  Sex: Male
  Weight: 131.36 kg

DRUGS (34)
  1. POLATUZUMAB VEDOTIN [Suspect]
     Active Substance: POLATUZUMAB VEDOTIN
     Indication: Diffuse large B-cell lymphoma
     Dosage: DATE AND START TIME OF MOST RECENT DOSE (236.5 MG) OF POLATUZUMAB VEDOTIN PRIOR TO AE ONSET: 24/MAY/
     Route: 042
     Dates: start: 20160225
  2. RITUXIMAB [Suspect]
     Active Substance: RITUXIMAB
     Indication: Diffuse large B-cell lymphoma
     Dosage: DATE AND START TIME OF MOST RECENT DOSE (1001.25 MG) OF RITUXIMAB PRIOR TO AE ONSET: 24/MAY/2016 (10
     Route: 042
     Dates: start: 20160224
  3. BENDAMUSTINE [Suspect]
     Active Substance: BENDAMUSTINE
     Indication: Diffuse large B-cell lymphoma
     Dosage: DATE AND START TIME OF MOST RECENT DOSE (240 MG) OF BENDAMUSTINE PRIOR TO AE ONSET: 25/MAY/2016 (08:
     Route: 042
     Dates: start: 20160225
  4. ZOFRAN [Concomitant]
     Active Substance: ONDANSETRON HYDROCHLORIDE
     Indication: Nausea
     Dates: start: 20160405
  5. AMBIEN [Concomitant]
     Active Substance: ZOLPIDEM TARTRATE
     Indication: Insomnia
     Dates: start: 20160405
  6. MEDROL [Concomitant]
     Active Substance: METHYLPREDNISOLONE
     Indication: Decreased appetite
     Dates: start: 20160608
  7. POTASSIUM CHLORIDE [Concomitant]
     Active Substance: POTASSIUM CHLORIDE
     Indication: Blood potassium decreased
     Dates: start: 20160614
  8. POTASSIUM CHLORIDE [Concomitant]
     Active Substance: POTASSIUM CHLORIDE
     Dates: start: 20160723, end: 20160723
  9. POTASSIUM CHLORIDE [Concomitant]
     Active Substance: POTASSIUM CHLORIDE
     Dates: start: 20160801, end: 20160801
  10. POTASSIUM CHLORIDE [Concomitant]
     Active Substance: POTASSIUM CHLORIDE
     Dates: start: 20160724, end: 20160724
  11. POTASSIUM CHLORIDE [Concomitant]
     Active Substance: POTASSIUM CHLORIDE
     Dates: start: 20160726, end: 20160726
  12. POTASSIUM CHLORIDE [Concomitant]
     Active Substance: POTASSIUM CHLORIDE
     Dates: start: 20160727, end: 20160727
  13. POTASSIUM CHLORIDE [Concomitant]
     Active Substance: POTASSIUM CHLORIDE
     Dates: start: 20160730, end: 20160730
  14. ALTEPLASE [Concomitant]
     Active Substance: ALTEPLASE
     Indication: Prophylaxis
     Dates: start: 20160810, end: 20160810
  15. BACITRACIN [Concomitant]
     Active Substance: BACITRACIN
     Indication: Prophylaxis
     Dates: start: 20160809, end: 20160813
  16. BACLOFEN [Concomitant]
     Active Substance: BACLOFEN
     Indication: Hiccups
     Dates: start: 20160725, end: 20160725
  17. CALCIUM CARBONATE [Concomitant]
     Active Substance: CALCIUM CARBONATE
     Indication: Hypocalcaemia
     Dates: start: 20160726, end: 20160726
  18. CALCIUM GLUCONATE [Concomitant]
     Active Substance: CALCIUM GLUCONATE
     Indication: Tachycardia
     Dates: start: 20160731, end: 20160731
  19. CEFEPIME [Concomitant]
     Active Substance: CEFEPIME HYDROCHLORIDE
     Indication: Pyrexia
     Dates: start: 20160731, end: 20160803
  20. ESOMEPRAZOLE. [Concomitant]
     Active Substance: ESOMEPRAZOLE MAGNESIUM
     Indication: Prophylaxis
     Dosage: INDICATION: DYSPHAGIA PROPHYLAXIS ASPIRATE
     Dates: start: 20160721, end: 20160801
  21. ESOMEPRAZOLE. [Concomitant]
     Active Substance: ESOMEPRAZOLE MAGNESIUM
     Dosage: INDICATION: DYSPHAGIA PROPHYLAXIS NG TUBE
     Dates: start: 20160807, end: 20160816
  22. FENTANYL [Concomitant]
     Active Substance: FENTANYL
     Indication: Prophylaxis
     Dosage: INDICATION: SEDATION PROPHYLAXIS IR GASTROTOMY
     Dates: start: 20160809, end: 20160809
  23. FENTANYL [Concomitant]
     Active Substance: FENTANYL
     Dosage: INDICATION: BRAIN BIOPSY PAIN PROPHYLAXIS
     Dates: start: 20160729, end: 20160729
  24. MAGNESIUM SULFATE [Concomitant]
     Active Substance: MAGNESIUM SULFATE
     Indication: Tachycardia
     Dates: start: 20160730, end: 20160731
  25. METRONIDAZOLE [Concomitant]
     Active Substance: METRONIDAZOLE
     Indication: Prophylaxis
     Dosage: INDICATION: PROPHYLAXIS NG TUBE
     Dates: start: 20160801, end: 20160802
  26. MIDAZOLAM [Concomitant]
     Active Substance: MIDAZOLAM
     Indication: Prophylaxis
     Dosage: INDICATION: SEDATION PROPHYLAXIS IR GASTROTOMY
     Dates: start: 20160809, end: 20160809
  27. ACETAMINOPHEN [Concomitant]
     Active Substance: ACETAMINOPHEN
     Indication: Pyrexia
     Dates: start: 20160727, end: 20160727
  28. ACETAMINOPHEN [Concomitant]
     Active Substance: ACETAMINOPHEN
     Indication: Chills
     Dates: start: 20160730, end: 20160731
  29. NORCO [Concomitant]
     Active Substance: ACETAMINOPHEN\HYDROCODONE BITARTRATE
     Indication: Pyrexia
     Dates: start: 20160729, end: 20160731
  30. NORCO [Concomitant]
     Active Substance: ACETAMINOPHEN\HYDROCODONE BITARTRATE
     Indication: Chills
  31. HYDROMORPHONE [Concomitant]
     Active Substance: HYDROMORPHONE
     Indication: Prophylaxis
     Dosage: INDICATION: BRAIN BIOPSY PAIN PROPHYLAXIS
     Dates: start: 20160729, end: 20160729
  32. HEPARIN SODIUM [Concomitant]
     Active Substance: HEPARIN SODIUM
     Indication: Prophylaxis
     Dosage: INDICATION: LINE FLUSHING PROPHYLAXIS
     Dates: start: 20160812, end: 20160815
  33. SODIUM PHOSPHATE [Concomitant]
     Active Substance: SODIUM PHOSPHATE
     Indication: Hypokalaemia
     Dates: start: 20160731, end: 20160731
  34. SODIUM CHLORIDE [Concomitant]
     Active Substance: SODIUM CHLORIDE
     Indication: Hypokalaemia
     Dates: start: 20160721, end: 20160816

REACTIONS (3)
  - Cerebral toxoplasmosis [Recovered/Resolved]
  - Vocal cord paralysis [Recovered/Resolved]
  - Pneumonia cytomegaloviral [Recovered/Resolved]

NARRATIVE: CASE EVENT DATE: 20160720
